FAERS Safety Report 13914490 (Version 1)
Quarter: 2017Q3

REPORT INFORMATION
  Report Type: Spontaneous
  Country: US (occurrence: US)
  Receive Date: 20170828
  Receipt Date: 20170828
  Transmission Date: 20171127
  Serious: No
  Sender: FDA-Public Use
  Company Number: US-ROCHE-1140251

PATIENT
  Sex: Male
  Weight: 73.6 kg

DRUGS (5)
  1. SYNAREL [Concomitant]
     Active Substance: NAFARELIN ACETATE
     Route: 045
  2. BENADRYL [Concomitant]
     Active Substance: DIPHENHYDRAMINE HYDROCHLORIDE
     Route: 048
  3. LUPRON [Concomitant]
     Active Substance: LEUPROLIDE ACETATE
     Route: 058
     Dates: start: 20000803
  4. NUTROPIN AQ [Suspect]
     Active Substance: SOMATROPIN
     Indication: GROWTH HORMONE DEFICIENCY
     Route: 058
  5. NUTROPIN AQ [Suspect]
     Active Substance: SOMATROPIN
     Dosage: DIVIDED DOSE
     Route: 058

REACTIONS (2)
  - Ear pain [Unknown]
  - Nasal congestion [Unknown]
